FAERS Safety Report 6278334-8 (Version None)
Quarter: 2009Q3

REPORT INFORMATION
  Report Type: 
  Country: None (occurrence: None)
  Receive Date: 20090720
  Receipt Date: 20090720
  Transmission Date: 20100115
  Serious: Yes (Life-Threatening, Hospitalization)
  Sender: FDA-Public Use
  Company Number: None

PATIENT
  Sex: Female
  Weight: 43.9989 kg

DRUGS (1)
  1. SKELAXIN [Suspect]
     Indication: NECK PAIN
     Dosage: ONE HALF TABLET DAILY AT BEDTIME
     Dates: start: 20090511, end: 20090513

REACTIONS (5)
  - ACTIVITIES OF DAILY LIVING IMPAIRED [None]
  - DYSSTASIA [None]
  - GAIT DISTURBANCE [None]
  - MOVEMENT DISORDER [None]
  - TREMOR [None]
